FAERS Safety Report 8050579-6 (Version None)
Quarter: 2012Q1

REPORT INFORMATION
  Report Type: 
  Country: None (occurrence: None)
  Receive Date: 20120117
  Receipt Date: 20120106
  Transmission Date: 20120608
  Serious: Yes (Other)
  Sender: FDA-Public Use
  Company Number: US-ASTRAZENECA-2010SE59067

PATIENT
  Age: 59 Year
  Sex: Female

DRUGS (1)
  1. NEXIUM [Suspect]
     Route: 048

REACTIONS (9)
  - DRUG DOSE OMISSION [None]
  - REGURGITATION [None]
  - GASTRIC DISORDER [None]
  - MALAISE [None]
  - CHEST PAIN [None]
  - CEREBROVASCULAR ACCIDENT [None]
  - APHAGIA [None]
  - VOMITING [None]
  - PAIN [None]
